FAERS Safety Report 14962220 (Version 1)
Quarter: 2018Q2

REPORT INFORMATION
  Report Type: Report from Study
  Country: US (occurrence: US)
  Receive Date: 20180601
  Receipt Date: 20180601
  Transmission Date: 20180711
  Serious: Yes (Hospitalization)
  Sender: FDA-Public Use
  Company Number: US-BAYER-2018-099417

PATIENT
  Age: 49 Year
  Sex: Male

DRUGS (9)
  1. ATORVASTATIN [Concomitant]
     Active Substance: ATORVASTATIN
  2. ARMODAFINIL. [Concomitant]
     Active Substance: ARMODAFINIL
  3. DULOXETINE. [Concomitant]
     Active Substance: DULOXETINE
  4. LEVEMIR [Concomitant]
     Active Substance: INSULIN DETEMIR
  5. LYRICA [Concomitant]
     Active Substance: PREGABALIN
  6. ASPIRIN. [Concomitant]
     Active Substance: ASPIRIN
  7. HUMALOG MIX [INSULIN LISPRO] [Concomitant]
  8. METOPROLOL. [Concomitant]
     Active Substance: METOPROLOL
  9. BETASERON [Suspect]
     Active Substance: INTERFERON BETA-1B
     Indication: RELAPSING-REMITTING MULTIPLE SCLEROSIS
     Dosage: UNK
     Dates: start: 20060101, end: 20170901

REACTIONS (4)
  - Cardiac arrest [Recovered/Resolved]
  - Localised infection [Recovered/Resolved]
  - Diabetes mellitus inadequate control [Recovered/Resolved]
  - Toe amputation [Recovered/Resolved]

NARRATIVE: CASE EVENT DATE: 201703
